FAERS Safety Report 6018712-5 (Version None)
Quarter: 2008Q4

REPORT INFORMATION
  Report Type: 
  Country: None (occurrence: None)
  Receive Date: 20081222
  Receipt Date: 20081210
  Transmission Date: 20090506
  Serious: Yes (Other)
  Sender: FDA-Public Use
  Company Number: 235790J08USA

PATIENT
  Age: 32 Year
  Sex: Female

DRUGS (5)
  1. REBIF [Suspect]
     Indication: MULTIPLE SCLEROSIS
     Dosage: 44 MCG, 3 IN 1 WEEKS, SUBCUTANEOUS
     Route: 058
     Dates: start: 20071201
  2. ADVIL [Suspect]
     Dates: start: 20070101, end: 20080501
  3. TYLENOL ARTHRITIS (PARACETAMOL) [Concomitant]
  4. LANTUS [Concomitant]
  5. GLYBURIDE [Concomitant]

REACTIONS (1)
  - RENAL FAILURE [None]
